FAERS Safety Report 23742798 (Version 1)
Quarter: 2024Q2

REPORT INFORMATION
  Report Type: Spontaneous
  Country: GB (occurrence: GB)
  Receive Date: 20240415
  Receipt Date: 20240415
  Transmission Date: 20240716
  Serious: Yes (Other)
  Sender: FDA-Public Use
  Company Number: None

PATIENT
  Age: 20 Year
  Sex: Female

DRUGS (10)
  1. PROTOPIC [Suspect]
     Active Substance: TACROLIMUS
     Indication: Hypersensitivity
     Route: 003
     Dates: start: 20191201, end: 20231201
  2. PROTOPIC [Suspect]
     Active Substance: TACROLIMUS
     Indication: Hypersensitivity
     Route: 003
     Dates: start: 20191201, end: 20231201
  3. PROTOPIC [Suspect]
     Active Substance: TACROLIMUS
     Indication: Hypersensitivity
     Route: 003
     Dates: start: 20191201, end: 20231201
  4. PROTOPIC [Suspect]
     Active Substance: TACROLIMUS
     Indication: Hypersensitivity
     Route: 003
     Dates: start: 20191201, end: 20231201
  5. PROTOPIC [Suspect]
     Active Substance: TACROLIMUS
     Indication: Eczema
     Route: 003
     Dates: start: 20191201, end: 20231201
  6. PROTOPIC [Suspect]
     Active Substance: TACROLIMUS
     Indication: Eczema
     Route: 003
     Dates: start: 20191201, end: 20231201
  7. PROTOPIC [Suspect]
     Active Substance: TACROLIMUS
     Indication: Eczema
     Route: 003
     Dates: start: 20191201, end: 20231201
  8. PROTOPIC [Suspect]
     Active Substance: TACROLIMUS
     Indication: Eczema
     Route: 003
     Dates: start: 20191201, end: 20231201
  9. CETIRIZINE [Concomitant]
     Active Substance: CETIRIZINE HYDROCHLORIDE
     Indication: Adverse drug reaction
     Dates: start: 20231022
  10. FEXOFENADINE [Concomitant]
     Active Substance: FEXOFENADINE HYDROCHLORIDE
     Indication: Adverse drug reaction
     Dates: start: 20201201

REACTIONS (6)
  - Medication error [Unknown]
  - Pruritus [Not Recovered/Not Resolved]
  - Skin burning sensation [Recovered/Resolved with Sequelae]
  - Rosacea [Not Recovered/Not Resolved]
  - Allergic oedema [Not Recovered/Not Resolved]
  - Eczema [Not Recovered/Not Resolved]

NARRATIVE: CASE EVENT DATE: 20191212
